FAERS Safety Report 4446891-X (Version None)
Quarter: 2004Q3

REPORT INFORMATION
  Report Type: 
  Country: None (occurrence: None)
  Receive Date: 20040910
  Receipt Date: 20040825
  Transmission Date: 20050211
  Serious: Yes (Other)
  Sender: FDA-Public Use
  Company Number: S04-UKI-03968-01

PATIENT
  Age: 24 Year
  Sex: Male

DRUGS (1)
  1. CIPRALEX (ESCITALOPRAM) [Suspect]
     Indication: DEPRESSION
     Dosage: 10 MG QD PO
     Route: 048
     Dates: start: 20040730, end: 20040812

REACTIONS (4)
  - GASTRITIS [None]
  - HAEMATEMESIS [None]
  - REFLUX OESOPHAGITIS [None]
  - UPPER GASTROINTESTINAL HAEMORRHAGE [None]
